FAERS Safety Report 11627457 (Version 1)
Quarter: 2015Q4

REPORT INFORMATION
  Report Type: Not Available
  Country: US (occurrence: US)
  Receive Date: 20151013
  Receipt Date: 20151013
  Transmission Date: 20160304
  Serious: No
  Sender: FDA-Public Use
  Company Number: US-3M-2015-US-000195

PATIENT
  Age: 46 Year
  Sex: Female

DRUGS (1)
  1. PERIDEX [Suspect]
     Active Substance: CHLORHEXIDINE GLUCONATE
     Dosage: 1 OZ ORAL RINSE
     Route: 048
     Dates: start: 20150107, end: 20150107

REACTIONS (1)
  - Oral pain [Recovering/Resolving]

NARRATIVE: CASE EVENT DATE: 20150107
